FAERS Safety Report 7497576-7 (Version None)
Quarter: 2011Q2

REPORT INFORMATION
  Report Type: 
  Country: None (occurrence: None)
  Receive Date: 20110523
  Receipt Date: 20110518
  Transmission Date: 20111010
  Serious: Yes (Hospitalization)
  Sender: FDA-Public Use
  Company Number: JP-PFIZER INC-2011106079

PATIENT
  Age: 56 Year
  Sex: Female
  Weight: 58 kg

DRUGS (4)
  1. SULPIRIDE [Concomitant]
     Indication: DEPRESSION
     Dosage: UNK
     Route: 048
  2. ZOLOFT [Suspect]
     Indication: DEPRESSION
     Dosage: 100 MG, DAILY
     Route: 048
  3. LEVOMEPROMAZINE [Concomitant]
     Indication: DEPRESSION
     Dosage: 60 MG, DAILY
     Route: 048
  4. AMANTADINE HCL [Suspect]
     Indication: DEPRESSION
     Dosage: 200 MG, DAILY
     Route: 048

REACTIONS (1)
  - MYOCLONUS [None]
